FAERS Safety Report 23610465 (Version 1)
Quarter: 2024Q1

REPORT INFORMATION
  Report Type: Report from Study
  Country: US (occurrence: US)
  Receive Date: 20240308
  Receipt Date: 20240308
  Transmission Date: 20240410
  Serious: Yes (Death)
  Sender: FDA-Public Use
  Company Number: US-BAYER-2024A035860

PATIENT
  Age: 78 Year
  Sex: Female

DRUGS (12)
  1. ADEMPAS [Suspect]
     Active Substance: RIOCIGUAT
     Indication: Pulmonary arterial hypertension
     Dosage: UNK
     Dates: start: 20220906
  2. ADEMPAS [Suspect]
     Active Substance: RIOCIGUAT
     Indication: Pulmonary arterial hypertension
     Dosage: 2.5 MG, TID
     Route: 048
  3. ANORO ELLIPTA [Concomitant]
     Active Substance: UMECLIDINIUM BROMIDE\VILANTEROL TRIFENATATE
  4. OPSUMIT [Concomitant]
     Active Substance: MACITENTAN
  5. BUMETANIDE [Concomitant]
     Active Substance: BUMETANIDE
  6. ELIQUIS [Concomitant]
     Active Substance: APIXABAN
  7. UPTRAVI [Concomitant]
     Active Substance: SELEXIPAG
  8. SYNTHROID [Concomitant]
     Active Substance: LEVOTHYROXINE SODIUM
  9. CITALOPRAM [Concomitant]
     Active Substance: CITALOPRAM HYDROBROMIDE
  10. PRAVASTATIN [Concomitant]
     Active Substance: PRAVASTATIN
  11. SODIUM [Concomitant]
     Active Substance: SODIUM
  12. ALPRAZOLAM [Concomitant]
     Active Substance: ALPRAZOLAM

REACTIONS (1)
  - Death [Fatal]

NARRATIVE: CASE EVENT DATE: 20240229
